FAERS Safety Report 8360971-8 (Version None)
Quarter: 2012Q2

REPORT INFORMATION
  Report Type: 
  Country: None (occurrence: None)
  Receive Date: 20120515
  Receipt Date: 20120510
  Transmission Date: 20120825
  Serious: Yes (Hospitalization)
  Sender: FDA-Public Use
  Company Number: CA-ROCHE-1061904

PATIENT
  Age: 64 Year
  Sex: Female
  Weight: 56.7 kg

DRUGS (3)
  1. PROCHLORPERAZINE [Concomitant]
     Dates: start: 20111102
  2. VEMURAFENIB [Suspect]
     Indication: MALIGNANT MELANOMA
     Dosage: DATE OF LAST DOSE PRIOR TO EVENT: 09/APR/2012
     Route: 048
     Dates: start: 20110908
  3. RETIN-A [Concomitant]
     Dosage: 0.05% CREAM PRN / %
     Dates: start: 20111006

REACTIONS (1)
  - ATRIAL FIBRILLATION [None]
